FAERS Safety Report 5676354-5 (Version None)
Quarter: 2008Q1

REPORT INFORMATION
  Report Type: 
  Country: None (occurrence: None)
  Receive Date: 20080321
  Receipt Date: 20080310
  Transmission Date: 20080703
  Serious: Yes (Death, Hospitalization)
  Sender: FDA-Public Use
  Company Number: FR-PFIZER INC-2008022809

PATIENT
  Age: 86 Year
  Sex: Female

DRUGS (11)
  1. ZOLOFT [Suspect]
     Route: 048
  2. TARGOCID [Suspect]
     Indication: INFECTION
     Route: 042
     Dates: start: 20070720, end: 20071019
  3. TAVANIC [Suspect]
     Indication: INFECTION
     Route: 048
     Dates: start: 20070717, end: 20071019
  4. DI-ANTALVIC [Suspect]
     Dosage: TEXT:3 DOSAGE FORMS-FREQ:EVERY DAY
     Route: 048
     Dates: start: 20071003, end: 20071020
  5. INIPOMP [Suspect]
     Dosage: TEXT:1 DOSAGE FORM-FREQ:EVERY DAY
     Dates: start: 20070911, end: 20071020
  6. LASILIX [Suspect]
     Route: 048
     Dates: start: 20070920, end: 20071020
  7. CARDENSIEL [Concomitant]
  8. DIGOXIN [Concomitant]
  9. PREVISCAN [Concomitant]
  10. STABLON [Concomitant]
  11. ALLOPURINOL [Concomitant]

REACTIONS (1)
  - FEBRILE NEUTROPENIA [None]
